FAERS Safety Report 7232546-5 (Version None)
Quarter: 2011Q1

REPORT INFORMATION
  Report Type: 
  Country: None (occurrence: None)
  Receive Date: 20110119
  Receipt Date: 20110112
  Transmission Date: 20110831
  Serious: Yes (Hospitalization, Other)
  Sender: FDA-Public Use
  Company Number: DE-AMGEN-DEUSP2010012428

PATIENT

DRUGS (14)
  1. BYETTA [Suspect]
     Indication: TYPE 2 DIABETES MELLITUS
     Dosage: 15 UG, DAILY (10 UG IN THE MORNING + 5 UG IN THE EVENING)
     Route: 058
     Dates: start: 20090101, end: 20100511
  2. GLIMEPIRIDE [Suspect]
     Indication: TYPE 2 DIABETES MELLITUS
     Dosage: 3 MG, 2X/DAY
     Route: 048
     Dates: start: 20080101, end: 20100511
  3. TILIDIN [Concomitant]
     Indication: PAIN
     Dosage: 1 DF (1DF = 50 MG TILIDINE PHOSPHATE + 4 MG NALOXONE HCL), 1X/DAY
     Route: 048
     Dates: start: 20100401
  4. PANTOZOL [Concomitant]
     Indication: PROPHYLAXIS AGAINST GASTROINTESTINAL ULCER
     Dosage: 20 MG, 1X/DAY
     Route: 048
     Dates: start: 20100201
  5. APSOMOL [Concomitant]
     Indication: ASTHMA
     Dosage: 200 UG, AS NEEDED
     Route: 055
     Dates: start: 20050101
  6. FORTZAAR [Concomitant]
     Indication: HYPERTENSION
     Dosage: 1 DF, 1X/DAY (1 DF = 100 MG LOSARTAN POTASSIUM + 25 MG HYDROCHOTHIAZIDE)
     Route: 048
     Dates: start: 20090101
  7. MAGNESIUM [Concomitant]
     Indication: PRODUCT USED FOR UNKNOWN INDICATION
     Dosage: UNK
     Route: 048
     Dates: start: 20090101
  8. ENBREL [Suspect]
     Indication: RHEUMATOID ARTHRITIS
     Dosage: 75 MG, WEEKLY (50 MG ON TUESDAYS + 25 MG ON FRIDAYS)
     Route: 058
     Dates: start: 20090101, end: 20100429
  9. ARAVA [Suspect]
     Indication: RHEUMATOID ARTHRITIS
     Dosage: 10 MG, 1X/DAY
     Route: 048
     Dates: start: 20090101, end: 20100429
  10. DICLOFENAC SODIUM [Suspect]
     Dosage: 75 MG, 1X/DAY
     Route: 048
     Dates: start: 20100512
  11. PREDNISOLONE [Concomitant]
     Indication: RHEUMATOID ARTHRITIS
     Dosage: 3 MG DAILY, (2 MG IN THE MORNING + 1 MG IN THE EVENING)
     Route: 048
     Dates: start: 20090101
  12. CALCIMAGON [Concomitant]
     Indication: OSTEOPOROSIS PROPHYLAXIS
     Dosage: 500 MG, 1X/DAY
     Route: 048
     Dates: start: 20090101
  13. TORSEMIDE [Concomitant]
     Indication: HYPERTENSION
     Dosage: 5 MG, 1X/DAY
     Route: 048
     Dates: start: 20090101
  14. DICLOFENAC SODIUM [Suspect]
     Indication: RHEUMATOID ARTHRITIS
     Dosage: 75 MG, 2X/DAY
     Route: 048
     Dates: start: 20100201, end: 20100429

REACTIONS (3)
  - PANCREATITIS [None]
  - DIABETES MELLITUS INADEQUATE CONTROL [None]
  - OEDEMATOUS PANCREATITIS [None]
